FAERS Safety Report 5884756-7 (Version None)
Quarter: 2008Q3

REPORT INFORMATION
  Report Type: 
  Country: None (occurrence: None)
  Receive Date: 20080916
  Receipt Date: 20080905
  Transmission Date: 20090109
  Serious: Yes (Other)
  Sender: FDA-Public Use
  Company Number: SG-BAXTER-2008BH009249

PATIENT

DRUGS (1)
  1. LACTATED RINGER'S [Suspect]
     Indication: EYE IRRIGATION
     Route: 061
     Dates: start: 19880729, end: 20080729

REACTIONS (6)
  - BLINDNESS [None]
  - POOR QUALITY DRUG ADMINISTERED [None]
  - POOR SANITATION [None]
  - PSEUDOMONAS INFECTION [None]
  - THERAPEUTIC PRODUCT CONTAMINATION [None]
  - TRANSMISSION OF AN INFECTIOUS AGENT VIA A MEDICINAL PRODUCT [None]
